FAERS Safety Report 8975745 (Version 1)
Quarter: 2012Q4

REPORT INFORMATION
  Report Type: 
  Country: GB (occurrence: GB)
  Receive Date: 20121219
  Receipt Date: 20121219
  Transmission Date: 20130627
  Serious: Yes (Hospitalization)
  Sender: FDA-Public Use
  Company Number: GB-ROCHE-1168110

PATIENT
  Age: 50 Year
  Sex: Female
  Weight: 56 kg

DRUGS (2)
  1. MABTHERA [Suspect]
     Indication: VASCULITIS
     Route: 065
     Dates: start: 20121009, end: 20121025
  2. ESTRADIOL [Concomitant]
     Indication: HORMONE REPLACEMENT THERAPY
     Route: 059
     Dates: start: 20120910

REACTIONS (2)
  - Oedema [Not Recovered/Not Resolved]
  - Vasculitic rash [Not Recovered/Not Resolved]
